FAERS Safety Report 18095361 (Version 10)
Quarter: 2021Q2

REPORT INFORMATION
  Report Type: Report from Study
  Country: None (occurrence: IL)
  Receive Date: 20200730
  Receipt Date: 20210616
  Transmission Date: 20210717
  Serious: Yes (Death, Other)
  Sender: FDA-Public Use
  Company Number: IL-ABBVIE-20K-082-3500188-00

PATIENT
  Age: 67 Year
  Sex: Male
  Weight: 114 kg

DRUGS (33)
  1. CARDILOC [Concomitant]
     Active Substance: BISOPROLOL FUMARATE
     Indication: MYOCARDIAL ISCHAEMIA
     Route: 048
  2. MICROPIRIN [Concomitant]
     Active Substance: ASPIRIN
     Indication: THROMBOSIS
     Route: 048
  3. ACAMOL [Concomitant]
     Active Substance: ACETAMINOPHEN
     Indication: PYREXIA
     Dates: start: 20200730, end: 20200730
  4. VENCLEXTA [Suspect]
     Active Substance: VENETOCLAX
     Route: 048
     Dates: start: 20200728, end: 20200728
  5. OPTALGIN [Concomitant]
     Active Substance: METAMIZOLE
     Indication: PAIN
     Route: 048
     Dates: start: 20200717, end: 20200804
  6. CARDILOC [Concomitant]
     Active Substance: BISOPROLOL FUMARATE
     Indication: HYPERTENSION
  7. NOVORAPID [Concomitant]
     Active Substance: INSULIN ASPART
     Indication: DIABETES MELLITUS
     Route: 058
  8. RASBURICASE [Concomitant]
     Active Substance: RASBURICASE
     Indication: TUMOUR LYSIS SYNDROME
     Route: 042
     Dates: start: 20200725, end: 20200725
  9. LOSEC [Concomitant]
     Active Substance: OMEPRAZOLE
     Indication: PROPHYLAXIS
     Route: 048
     Dates: start: 20200803, end: 20200806
  10. CALCIUM GLUCONATE. [Concomitant]
     Active Substance: CALCIUM GLUCONATE
     Indication: HYPERKALAEMIA
     Route: 042
     Dates: start: 20200725, end: 20200725
  11. VENCLEXTA [Suspect]
     Active Substance: VENETOCLAX
     Indication: ACUTE MYELOID LEUKAEMIA
     Route: 048
     Dates: start: 20200724, end: 20200724
  12. ALBUMIN [Concomitant]
     Active Substance: ALBUMIN HUMAN
     Indication: HYPOALBUMINAEMIA
     Route: 042
     Dates: start: 20200726, end: 20200726
  13. OXYCODONE [Concomitant]
     Active Substance: OXYCODONE
     Indication: PRODUCT USED FOR UNKNOWN INDICATION
     Route: 048
  14. VENCLEXTA [Suspect]
     Active Substance: VENETOCLAX
     Route: 048
     Dates: start: 20200729, end: 20200729
  15. VENCLEXTA [Suspect]
     Active Substance: VENETOCLAX
     Route: 048
     Dates: start: 20200730, end: 20200730
  16. VENCLEXTA [Suspect]
     Active Substance: VENETOCLAX
     Dosage: 300 MG, MODIFICATION TO THE DAILY DOSE, DOSE REDUCTION DUE TO ADVERSE EVENT
     Route: 048
     Dates: start: 20200802, end: 20200802
  17. AEROVENT [Concomitant]
     Indication: DYSPNOEA
     Route: 055
     Dates: start: 20200718
  18. ALLO [Concomitant]
     Active Substance: ALLOPURINOL
     Indication: CHRONIC KIDNEY DISEASE
     Route: 048
     Dates: start: 20200720, end: 20200723
  19. TAZOCIN [Concomitant]
     Active Substance: PIPERACILLIN SODIUM\TAZOBACTAM SODIUM
     Indication: PROPHYLAXIS
  20. VASODIP [Concomitant]
     Active Substance: LERCANIDIPINE HYDROCHLORIDE
     Indication: HYPERTENSION
     Route: 048
  21. ALLORIL [Concomitant]
     Active Substance: ALLOPURINOL
     Indication: TUMOUR LYSIS SYNDROME
     Route: 048
     Dates: start: 20200717, end: 20200806
  22. OXYCODEGOL. [Concomitant]
     Active Substance: OXYCODEGOL
     Indication: PAIN
     Route: 048
     Dates: start: 20200718, end: 20200804
  23. TAZOCIN [Concomitant]
     Active Substance: PIPERACILLIN SODIUM\TAZOBACTAM SODIUM
     Indication: PROPHYLAXIS
     Route: 042
     Dates: start: 20200717, end: 20200730
  24. VENCLEXTA [Suspect]
     Active Substance: VENETOCLAX
     Dosage: 200 MG, INTERRUPTION DOSE REDUCTION DUE TO ADVERSE EVENT
     Route: 048
     Dates: start: 20200803, end: 20200803
  25. VENCLEXTA [Suspect]
     Active Substance: VENETOCLAX
     Dosage: 200 MG, DISCONTINUATION DUE TO ADVERSE EVENT
     Route: 048
     Dates: start: 20200805, end: 20200806
  26. AZACITIDINE. [Suspect]
     Active Substance: AZACITIDINE
     Indication: PRODUCT USED FOR UNKNOWN INDICATION
     Dosage: CYCLE 1
     Route: 058
     Dates: start: 20200721, end: 20200727
  27. AEROVENT [Concomitant]
     Indication: DYSPNOEA
  28. ACTRAPID [Concomitant]
     Active Substance: INSULIN HUMAN
     Indication: DIABETES MELLITUS
  29. KAYEXALATE [Concomitant]
     Active Substance: SODIUM POLYSTYRENE SULFONATE
     Indication: HYPERKALAEMIA
     Dates: start: 20200726
  30. BONDORMIN [Concomitant]
     Active Substance: BROTIZOLAM
     Indication: INSOMNIA
     Route: 048
     Dates: start: 20200718, end: 20200723
  31. LANTUS [Concomitant]
     Active Substance: INSULIN GLARGINE
     Indication: DIABETES MELLITUS
     Route: 058
     Dates: start: 20200806
  32. PROCTOZORIN [Concomitant]
     Indication: HAEMORRHOIDS
     Route: 054
     Dates: start: 20200718
  33. ZEFIX [Concomitant]
     Active Substance: LAMIVUDINE
     Indication: HEPATITIS B
     Route: 048
     Dates: start: 20200720, end: 20200806

REACTIONS (19)
  - Pain in extremity [Recovered/Resolved]
  - Dyspnoea [Not Recovered/Not Resolved]
  - Pain [Not Recovered/Not Resolved]
  - Respiratory distress [Fatal]
  - Metabolic acidosis [Not Recovered/Not Resolved]
  - Urethral injury [Recovered/Resolved]
  - Generalised oedema [Not Recovered/Not Resolved]
  - Pyrexia [Recovered/Resolved]
  - Neutropenia [Not Recovered/Not Resolved]
  - Hyperkalaemia [Not Recovered/Not Resolved]
  - Chest discomfort [Not Recovered/Not Resolved]
  - Dyspnoea [Not Recovered/Not Resolved]
  - Urethral discharge [Unknown]
  - Anaemia [Not Recovered/Not Resolved]
  - Rhonchi [Not Recovered/Not Resolved]
  - Scrotal oedema [Not Recovered/Not Resolved]
  - Tumour lysis syndrome [Recovered/Resolved]
  - Tachypnoea [Not Recovered/Not Resolved]
  - Troponin increased [Recovered/Resolved]

NARRATIVE: CASE EVENT DATE: 202007
